FAERS Safety Report 7821606 (Version 4)
Quarter: 2014Q1

REPORT INFORMATION
  Report Type: Report from Study
  Country: US (occurrence: US)
  Receive Date: 20110222
  Receipt Date: 20140221
  Transmission Date: 20141002
  Serious: Yes (Hospitalization)
  Sender: FDA-Public Use
  Company Number: US-ALEXION-A201100186

PATIENT
  Age: 67 Year
  Sex: Male

DRUGS (9)
  1. SOLIRIS [Suspect]
     Indication: PAROXYSMAL NOCTURNAL HAEMOGLOBINURIA
     Dosage: 600 MG, QW
     Route: 042
     Dates: start: 200902
  2. SOLIRIS [Suspect]
     Dosage: 900 MG, Q2W
     Route: 042
     Dates: start: 200903
  3. DESFERAL [Concomitant]
  4. RAMIPRIL [Concomitant]
     Dosage: 25 MG, QD
     Route: 048
  5. RESTORIL [Concomitant]
     Dosage: 15 MG, QD
     Route: 048
  6. TOPROL [Concomitant]
     Dosage: 25 MG, BID
     Route: 048
  7. FOLIC ACID [Concomitant]
     Dosage: 1 MG, QD
     Route: 048
  8. LASIX [Concomitant]
     Dosage: 20 MG, BID
     Route: 048
  9. VITAMIN B12 [Concomitant]
     Dosage: 1000 UG, QD
     Route: 048

REACTIONS (5)
  - Cellulitis [Not Recovered/Not Resolved]
  - Pseudomonas infection [Not Recovered/Not Resolved]
  - Blood iron increased [Recovering/Resolving]
  - Haemoglobin decreased [Recovered/Resolved]
  - Blood bilirubin increased [Unknown]
